FAERS Safety Report 13740503 (Version 1)
Quarter: 2017Q3

REPORT INFORMATION
  Report Type: Not Available
  Country: GB (occurrence: GB)
  Receive Date: 20170711
  Receipt Date: 20170711
  Transmission Date: 20171127
  Serious: Yes (Death)
  Sender: FDA-Public Use
  Company Number: GB-IDTAUSTRALIA-2017-UK-000028

PATIENT
  Age: 64 Year
  Sex: Male

DRUGS (7)
  1. CLOPIDOGREL [Concomitant]
     Active Substance: CLOPIDOGREL BISULFATE
  2. THIAMINE. [Concomitant]
     Active Substance: THIAMINE
  3. VITAMIN B CO-STRONG [Concomitant]
  4. DEXAMETHASONE (NON-SPECIFIC) [Suspect]
     Active Substance: DEXAMETHASONE
     Dosage: 8MG TWICE DAILY
  5. ATORVASTATIN [Concomitant]
     Active Substance: ATORVASTATIN
  6. RAMIPRIL. [Concomitant]
     Active Substance: RAMIPRIL
  7. AMITRIPTYLINE [Concomitant]
     Active Substance: AMITRIPTYLINE

REACTIONS (3)
  - Multiple organ dysfunction syndrome [Fatal]
  - Death [Fatal]
  - Tumour lysis syndrome [Fatal]
